FAERS Safety Report 13036123 (Version 3)
Quarter: 2017Q1

REPORT INFORMATION
  Report Type: Report from Study
  Country: ES (occurrence: ES)
  Receive Date: 20161216
  Receipt Date: 20170209
  Transmission Date: 20170428
  Serious: Yes (Death)
  Sender: FDA-Public Use
  Company Number: ES-JNJFOC-20161214730

PATIENT
  Age: 75 Year
  Sex: Male
  Weight: 70 kg

DRUGS (9)
  1. DOXORUBICIN [Suspect]
     Active Substance: DOXORUBICIN
     Indication: SOFT TISSUE SARCOMA
     Route: 042
     Dates: start: 20161128, end: 20161128
  2. DEXRAZOXANE. [Suspect]
     Active Substance: DEXRAZOXANE
     Indication: SOFT TISSUE SARCOMA
     Route: 042
     Dates: start: 20161128, end: 20161128
  3. OLARATUMAB [Suspect]
     Active Substance: OLARATUMAB
     Indication: SOFT TISSUE SARCOMA
     Route: 042
     Dates: start: 20161128, end: 20161205
  4. ATENOLOL. [Concomitant]
     Active Substance: ATENOLOL
     Route: 065
     Dates: start: 2004, end: 20161209
  5. PRAVASTATIN. [Concomitant]
     Active Substance: PRAVASTATIN
     Route: 065
     Dates: start: 2010, end: 20161209
  6. TRAMADOL. [Concomitant]
     Active Substance: TRAMADOL
     Route: 065
     Dates: start: 20161011, end: 20161209
  7. PARACETAMOL [Concomitant]
     Active Substance: ACETAMINOPHEN
     Route: 065
     Dates: start: 20161011, end: 20161209
  8. OLARATUMAB [Suspect]
     Active Substance: OLARATUMAB
     Indication: SOFT TISSUE SARCOMA
     Route: 042
     Dates: start: 20161108
  9. MORPHINE [Concomitant]
     Active Substance: MORPHINE
     Route: 065
     Dates: start: 20151108, end: 20161209

REACTIONS (1)
  - Cardiopulmonary failure [Fatal]

NARRATIVE: CASE EVENT DATE: 20161209
